FAERS Safety Report 5787218-0 (Version None)
Quarter: 2008Q2

REPORT INFORMATION
  Report Type: 
  Country: None (occurrence: None)
  Receive Date: 20080623
  Receipt Date: 20080623
  Transmission Date: 20081010
  Serious: Yes (Disabling, Other)
  Sender: FDA-Public Use
  Company Number: None

PATIENT
  Age: 38 Year
  Sex: Male
  Weight: 61.6892 kg

DRUGS (1)
  1. CIPROFLOXACIN 500MG APOTEX USA -TARGET PHARMACY- [Suspect]
     Indication: HYDROCELE
     Dosage: 1 TAB TWICE PO
     Route: 048
     Dates: start: 20080614, end: 20080628

REACTIONS (3)
  - DRUG INEFFECTIVE [None]
  - MUSCULOSKELETAL DISCOMFORT [None]
  - PHARMACEUTICAL PRODUCT COMPLAINT [None]
